FAERS Safety Report 7659915-3 (Version None)
Quarter: 2011Q3

REPORT INFORMATION
  Report Type: 
  Country: None (occurrence: None)
  Receive Date: 20110805
  Receipt Date: 20110720
  Transmission Date: 20111222
  Serious: Yes (Hospitalization)
  Sender: FDA-Public Use
  Company Number: US-ASTELLAS-2011US004624

PATIENT
  Sex: Female

DRUGS (3)
  1. BEVACIZUMAB [Suspect]
     Indication: BREAST CANCER
     Dosage: 517 MG, 1 X PER 2 WEEKS UNK
     Route: 042
     Dates: start: 20090723
  2. ERLOTINIB HYDROCHLORIDE [Suspect]
     Indication: PRODUCT USED FOR UNKNOWN INDICATION
     Dosage: 150 MG, UID/QD
     Route: 048
     Dates: start: 20090723
  3. ADRIAMYCIN PFS [Suspect]
     Indication: PRODUCT USED FOR UNKNOWN INDICATION
     Dosage: UNK
     Route: 065

REACTIONS (1)
  - CARDIAC FAILURE ACUTE [None]
